FAERS Safety Report 21758245 (Version 16)
Quarter: 2024Q3

REPORT INFORMATION
  Report Type: Spontaneous
  Country: CA (occurrence: CA)
  Receive Date: 20221221
  Receipt Date: 20240927
  Transmission Date: 20241016
  Serious: Yes (Other)
  Sender: CELLTRION
  Company Number: CA-CELLTRION INC.-2020CA031460

PATIENT

DRUGS (52)
  1. INFLECTRA [Suspect]
     Active Substance: INFLIXIMAB-DYYB
     Indication: Crohn^s disease
     Dosage: 355 MG (5 MG/KG), EVERY AT 0, 2, 6 WEEKS, THEN EVERY 8 WEEKS
     Route: 042
     Dates: start: 20201104, end: 20201104
  2. INFLECTRA [Suspect]
     Active Substance: INFLIXIMAB-DYYB
     Dosage: 5 MG/KG, AT 0, 2, 6 WEEKS, THEN EVERY 8 WEEKS
     Route: 042
     Dates: start: 20201117
  3. INFLECTRA [Suspect]
     Active Substance: INFLIXIMAB-DYYB
     Dosage: 5 MG/KG, AT 0, 2, 6 WEEKS, THEN EVERY 8 WEEKS
     Route: 042
     Dates: start: 20201216
  4. INFLECTRA [Suspect]
     Active Substance: INFLIXIMAB-DYYB
     Dosage: 5 MG/KG, AT 0, 2, 6 WEEKS, THEN EVERY 8 WEEKS
     Route: 042
     Dates: start: 20210210
  5. INFLECTRA [Suspect]
     Active Substance: INFLIXIMAB-DYYB
     Dosage: 5 MG/KG, AT 0, 2, 6 WEEKS, THEN EVERY 8 WEEKS
     Route: 042
     Dates: start: 20210407
  6. INFLECTRA [Suspect]
     Active Substance: INFLIXIMAB-DYYB
     Dosage: 5 MG/KG, 0,2,6 THEN EVERY 8 WEEKS
     Route: 042
     Dates: start: 20210603
  7. INFLECTRA [Suspect]
     Active Substance: INFLIXIMAB-DYYB
     Dosage: 5 MG/KG, 0,2,6 THEN EVERY 8 WEEKS
     Route: 042
     Dates: start: 20210804, end: 20210804
  8. INFLECTRA [Suspect]
     Active Substance: INFLIXIMAB-DYYB
     Dosage: 5 MG/KG 0,2,6 THEN EVERY 8 WEEKS
     Route: 042
     Dates: start: 20211125
  9. INFLECTRA [Suspect]
     Active Substance: INFLIXIMAB-DYYB
     Dosage: 5 MG/KG 0,2,6 THEN EVERY 8 WEEKS
     Route: 042
     Dates: start: 20220120
  10. INFLECTRA [Suspect]
     Active Substance: INFLIXIMAB-DYYB
     Dosage: 5 MG/KG 0,2,6 THEN EVERY 8 WEEKS
     Route: 042
     Dates: start: 20220321
  11. INFLECTRA [Suspect]
     Active Substance: INFLIXIMAB-DYYB
     Dosage: 5 MG/KG 0,2,6 THEN EVERY 8 WEEKS
     Route: 042
     Dates: start: 20220518
  12. INFLECTRA [Suspect]
     Active Substance: INFLIXIMAB-DYYB
     Dosage: 5 MG/KG 0,2,6 THEN EVERY 8 WEEKS
     Route: 042
     Dates: start: 20220713
  13. INFLECTRA [Suspect]
     Active Substance: INFLIXIMAB-DYYB
     Dosage: 5 MG/KG 0,2,6 THEN EVERY 8 WEEKS
     Route: 042
     Dates: start: 20220907
  14. INFLECTRA [Suspect]
     Active Substance: INFLIXIMAB-DYYB
     Dosage: 300 MG, (SUPPOSED TO RECEIVE 5 MG/KG), Q 0, 2, 6 THEN EVERY 8 WEEKS
     Route: 042
     Dates: start: 20221102
  15. INFLECTRA [Suspect]
     Active Substance: INFLIXIMAB-DYYB
     Dosage: 5 MG/KG 0,2,6 THEN EVERY 8 WEEKS
     Route: 042
     Dates: start: 20221228
  16. INFLECTRA [Suspect]
     Active Substance: INFLIXIMAB-DYYB
     Dosage: 300 MG (5 MG/KG) EVERY 6 WEEKS
     Route: 042
     Dates: start: 20230209
  17. INFLECTRA [Suspect]
     Active Substance: INFLIXIMAB-DYYB
     Dosage: 5 MG/KG, EVERY 6 WEEKS
     Route: 042
     Dates: start: 20230322
  18. INFLECTRA [Suspect]
     Active Substance: INFLIXIMAB-DYYB
     Dosage: 293 MG (5MG/KG) EVERY 6 WEEKS
     Route: 042
     Dates: start: 20230503
  19. INFLECTRA [Suspect]
     Active Substance: INFLIXIMAB-DYYB
     Dosage: 295.5 MG (5MG/KG) EVERY 6 WEEKS
     Route: 042
     Dates: start: 20230612
  20. INFLECTRA [Suspect]
     Active Substance: INFLIXIMAB-DYYB
     Dosage: 296 MG, AFTER 6 WEEKS
     Route: 042
     Dates: start: 20230726
  21. INFLECTRA [Suspect]
     Active Substance: INFLIXIMAB-DYYB
     Dosage: 5 MG/KG, EVERY 6 WEEKS
     Route: 042
     Dates: start: 20230906
  22. INFLECTRA [Suspect]
     Active Substance: INFLIXIMAB-DYYB
     Dosage: 293 MG, 6 WEEKS AND 6 DAYS (SUPPOSED TO RECEIVE EVERY 6 WEEKS)
     Route: 042
     Dates: start: 20231017
  23. INFLECTRA [Suspect]
     Active Substance: INFLIXIMAB-DYYB
     Dosage: 490 MG, (PRESCRIBED 5MG/KG), AFTER 8 WEEKS (SUPPOSED TO RECEIVE EVERY 6 WEEKS)
     Route: 042
     Dates: start: 20231129
  24. INFLECTRA [Suspect]
     Active Substance: INFLIXIMAB-DYYB
     Dosage: 5 MG/KG, EVERY 6 WEEKS
     Route: 042
     Dates: start: 20240110
  25. INFLECTRA [Suspect]
     Active Substance: INFLIXIMAB-DYYB
     Dosage: 5 MG/KG, EVERY 6 WEEKS (300 MG, 5 WEEKS 2 DAYS)
     Route: 042
     Dates: start: 20240216
  26. INFLECTRA [Suspect]
     Active Substance: INFLIXIMAB-DYYB
     Dosage: 5 MG/KG, EVERY 6 WEEKS (300MG AFTER 5 WEEKS)
     Route: 042
     Dates: start: 20240328
  27. INFLECTRA [Suspect]
     Active Substance: INFLIXIMAB-DYYB
     Dosage: 5 MG/KG, EVERY 6 WEEKS (300MG AFTER 5 WEEKS)
     Route: 042
     Dates: start: 20240509
  28. INFLECTRA [Suspect]
     Active Substance: INFLIXIMAB-DYYB
     Dosage: 318.5 MG, 6 WEEKS AND 1 DAY (5 MG/KG, EVERY 6 WEEK)
     Route: 042
     Dates: start: 20240621
  29. INFLECTRA [Suspect]
     Active Substance: INFLIXIMAB-DYYB
     Dosage: 317.5MG AFTER 6 WEEKS AND 4 DAYS (5 MG/LG EVERY 6 WEEK)
     Route: 042
     Dates: start: 20240806
  30. INFLECTRA [Suspect]
     Active Substance: INFLIXIMAB-DYYB
     Dosage: 310 MG AFTER 6 WEEKS AND 1 DAY (EVERY 6 WEEK)
     Route: 042
     Dates: start: 20240918
  31. ADALAT [Concomitant]
     Active Substance: NIFEDIPINE
     Dosage: 30 MG
  32. ADALAT [Concomitant]
     Active Substance: NIFEDIPINE
     Dosage: UNK
  33. BISOPROLOL [Concomitant]
     Active Substance: BISOPROLOL\BISOPROLOL FUMARATE
     Dosage: 1 DF, 1.25 MG FREQUENCY UNKNOWN
  34. BISOPROLOL [Concomitant]
     Active Substance: BISOPROLOL\BISOPROLOL FUMARATE
     Dosage: UNK
  35. BUSPIRONE [Concomitant]
     Active Substance: BUSPIRONE HYDROCHLORIDE
     Dosage: 10 MG
  36. BUSPIRONE [Concomitant]
     Active Substance: BUSPIRONE HYDROCHLORIDE
     Dosage: UNK
  37. DIENOGEST [Concomitant]
     Active Substance: DIENOGEST
     Dosage: 2 MG
  38. DIENOGEST [Concomitant]
     Active Substance: DIENOGEST
     Dosage: UNK
  39. INDAPAMIDE [Concomitant]
     Active Substance: INDAPAMIDE
     Dosage: 1 DF
  40. INDAPAMIDE [Concomitant]
     Active Substance: INDAPAMIDE
     Dosage: UNK
  41. IMURAN [Concomitant]
     Active Substance: AZATHIOPRINE
     Dosage: 100 MG
  42. IMURAN [Concomitant]
     Active Substance: AZATHIOPRINE
     Dosage: 150 MG, DAILY
  43. IMURAN [Concomitant]
     Active Substance: AZATHIOPRINE
     Dosage: 100 MG (FREQUENCY UNKNOWN)
  44. MODAFINIL [Concomitant]
     Active Substance: MODAFINIL
     Dosage: 100 MG
  45. MODAFINIL [Concomitant]
     Active Substance: MODAFINIL
     Dosage: UNK
  46. PANTOPRAZOLE [Concomitant]
     Active Substance: PANTOPRAZOLE
     Dosage: UNK
  47. PERINDOPRIL [Concomitant]
     Active Substance: PERINDOPRIL
     Dosage: 1 DF
  48. PERINDOPRIL [Concomitant]
     Active Substance: PERINDOPRIL
     Dosage: UNK
  49. PREGABALIN [Concomitant]
     Active Substance: PREGABALIN
     Dosage: 1 DF
  50. PREGABALIN [Concomitant]
     Active Substance: PREGABALIN
     Dosage: UNK
  51. ACETAMINOPHEN\TRAMADOL [Concomitant]
     Active Substance: ACETAMINOPHEN\TRAMADOL
     Dosage: 1 DF
  52. ACETAMINOPHEN\TRAMADOL [Concomitant]
     Active Substance: ACETAMINOPHEN\TRAMADOL
     Dosage: UNK

REACTIONS (21)
  - Epiploic appendagitis [Not Recovered/Not Resolved]
  - Condition aggravated [Not Recovered/Not Resolved]
  - Drug ineffective [Unknown]
  - Drug level above therapeutic [Unknown]
  - Drug level below therapeutic [Unknown]
  - Headache [Unknown]
  - Alopecia [Not Recovered/Not Resolved]
  - Arthralgia [Recovered/Resolved]
  - Fatigue [Not Recovered/Not Resolved]
  - Abdominal discomfort [Unknown]
  - COVID-19 [Recovering/Resolving]
  - Influenza [Recovered/Resolved]
  - Sinusitis [Recovered/Resolved]
  - Pharyngitis streptococcal [Recovered/Resolved]
  - Arthralgia [Recovered/Resolved]
  - Inappropriate schedule of product administration [Unknown]
  - Incorrect dose administered [Unknown]
  - Incorrect product administration duration [Unknown]
  - Off label use [Unknown]
  - Off label use [Unknown]
  - Intentional product use issue [Unknown]

NARRATIVE: CASE EVENT DATE: 20201104
